FAERS Safety Report 12603897 (Version 2)
Quarter: 2016Q3

REPORT INFORMATION
  Report Type: Spontaneous
  Country: PK (occurrence: PK)
  Receive Date: 20160728
  Receipt Date: 20160919
  Transmission Date: 20161109
  Serious: Yes (Life-Threatening, Hospitalization, Other)
  Sender: FDA-Public Use
  Company Number: PK-VALIDUS PHARMACEUTICALS LLC-PK-2016VAL002305

PATIENT
  Age: 35 Year
  Sex: Male

DRUGS (1)
  1. CEFOTAXIME SODIUM [Suspect]
     Active Substance: CEFOTAXIME SODIUM
     Indication: ILEOSTOMY
     Dosage: 500 MG, UNK
     Route: 042
     Dates: start: 20160710, end: 20160710

REACTIONS (6)
  - Dyspnoea [Recovered/Resolved with Sequelae]
  - Shock [Unknown]
  - Tachycardia [Recovered/Resolved with Sequelae]
  - Hypotension [Recovered/Resolved with Sequelae]
  - Somnolence [Unknown]
  - Supraventricular tachycardia [Unknown]

NARRATIVE: CASE EVENT DATE: 20160710
